FAERS Safety Report 9231954 (Version 1)
Quarter: 2013Q2

REPORT INFORMATION
  Report Type: Spontaneous
  Country: US (occurrence: US)
  Receive Date: 20130415
  Receipt Date: 20130415
  Transmission Date: 20140414
  Serious: Yes (Hospitalization)
  Sender: FDA-Public Use
  Company Number: US-ELI_LILLY_AND_COMPANY-US201302002287

PATIENT
  Sex: Male
  Weight: 143.31 kg

DRUGS (2)
  1. HUMALOG LISPRO [Suspect]
     Indication: TYPE 1 DIABETES MELLITUS
     Dosage: 15 U, TID
     Route: 058
     Dates: start: 2005
  2. LANTUS [Concomitant]

REACTIONS (2)
  - Arthritis [Unknown]
  - Drug dose omission [Unknown]
